FAERS Safety Report 21198469 (Version 2)
Quarter: 2022Q3

REPORT INFORMATION
  Report Type: Report from Study
  Country: BY (occurrence: BY)
  Receive Date: 20220811
  Receipt Date: 20220912
  Transmission Date: 20221027
  Serious: No
  Sender: FDA-Public Use
  Company Number: BY-BRISTOL-MYERS SQUIBB COMPANY-2022-082299

PATIENT
  Age: 35 Year
  Sex: Female

DRUGS (1)
  1. DROSPIRENONE\ETHINYL ESTRADIOL [Suspect]
     Active Substance: DROSPIRENONE\ETHINYL ESTRADIOL
     Indication: Oral contraception
     Dosage: ETHINYL ESTRADIOL 0.02 MG + DROSPIRENONE 3.0 MG
     Route: 048
     Dates: start: 20220122, end: 20220723

REACTIONS (2)
  - Maternal exposure during pregnancy [Unknown]
  - Pregnancy on oral contraceptive [Unknown]
